FAERS Safety Report 10921341 (Version 2)
Quarter: 2015Q2

REPORT INFORMATION
  Report Type: Spontaneous
  Country: CA (occurrence: CA)
  Receive Date: 20150317
  Receipt Date: 20150403
  Transmission Date: 20150821
  Serious: Yes (Other)
  Sender: FDA-Public Use
  Company Number: CA-GILEAD-2015-0140246

PATIENT
  Age: 55 Year
  Sex: Male
  Weight: 80.6 kg

DRUGS (6)
  1. GLYBURIDE. [Concomitant]
     Active Substance: GLYBURIDE
     Indication: TYPE 2 DIABETES MELLITUS
     Dosage: 5 MG, QD
     Route: 048
  2. SEPTRA DS [Concomitant]
     Active Substance: SULFAMETHOXAZOLE\TRIMETHOPRIM
     Indication: PROPHYLAXIS
     Dosage: 1600, UNK, UNK
     Route: 048
     Dates: start: 201410, end: 20141117
  3. METFORMIN [Concomitant]
     Active Substance: METFORMIN HYDROCHLORIDE
     Indication: TYPE 2 DIABETES MELLITUS
     Dosage: 1 G, BID
     Route: 048
  4. FILGRASTIM [Concomitant]
     Active Substance: FILGRASTIM
     Indication: NEUTROPENIA
     Route: 058
  5. STRIBILD [Suspect]
     Active Substance: COBICISTAT\ELVITEGRAVIR\EMTRICITABINE\TENOFOVIR DISOPROXIL FUMARATE
     Indication: HIV INFECTION
     Dosage: 1 DF, QD
     Route: 048
     Dates: start: 20141015, end: 20150128
  6. GANCICLOVIR. [Concomitant]
     Active Substance: GANCICLOVIR
     Indication: CYTOMEGALOVIRUS INFECTION
     Dosage: UNK
     Route: 042
     Dates: start: 201410

REACTIONS (5)
  - Visual acuity reduced [Unknown]
  - Viral mutation identified [Unknown]
  - Intentional product misuse [Recovered/Resolved]
  - Virologic failure [Not Recovered/Not Resolved]
  - Drug ineffective [Not Recovered/Not Resolved]

NARRATIVE: CASE EVENT DATE: 20150115
